FAERS Safety Report 5074023-6 (Version None)
Quarter: 2006Q3

REPORT INFORMATION
  Report Type: 
  Country: None (occurrence: None)
  Receive Date: 20060808
  Receipt Date: 20060323
  Transmission Date: 20061208
  Serious: No
  Sender: FDA-Public Use
  Company Number: US-AMGEN-KDL173814

PATIENT
  Sex: Female
  Weight: 72.6 kg

DRUGS (2)
  1. PROCRIT [Suspect]
     Indication: ANAEMIA OF MALIGNANT DISEASE
     Dates: start: 20050201, end: 20060213
  2. LASIX [Concomitant]

REACTIONS (1)
  - OEDEMA PERIPHERAL [None]
